FAERS Safety Report 7524063-X (Version None)
Quarter: 2011Q2

REPORT INFORMATION
  Report Type: 
  Country: None (occurrence: None)
  Receive Date: 20110605
  Receipt Date: 20110530
  Transmission Date: 20111010
  Serious: Yes (Hospitalization)
  Sender: FDA-Public Use
  Company Number: CA-BRISTOL-MYERS SQUIBB COMPANY-15773427

PATIENT
  Age: 59 Year
  Sex: Male

DRUGS (14)
  1. VINORELBINE [Suspect]
     Indication: NON-SMALL CELL LUNG CANCER
     Route: 042
     Dates: start: 20110412
  2. SENOKOT [Concomitant]
     Dates: start: 20110301
  3. ATIVAN [Concomitant]
     Dates: start: 20110501
  4. DEXAMETHASONE [Concomitant]
     Dates: start: 20110301
  5. COLACE [Concomitant]
     Dates: start: 20110401
  6. LIPITOR [Concomitant]
     Dates: start: 20110107
  7. DILAUDID [Concomitant]
     Dates: start: 20110301
  8. NYSTATIN [Concomitant]
     Dates: start: 20110501
  9. ERBITUX [Suspect]
     Indication: NON-SMALL CELL LUNG CANCER
     Route: 042
     Dates: start: 20110412
  10. MS CONTIN [Concomitant]
     Dates: start: 20110301
  11. PANTOPRAZOLE SODIUM [Concomitant]
     Dates: start: 20110401
  12. ZOPICLONE [Concomitant]
     Dates: start: 20110208
  13. CISPLATIN [Suspect]
     Indication: NON-SMALL CELL LUNG CANCER
     Route: 042
     Dates: start: 20110412
  14. LYRICA [Concomitant]
     Dates: start: 20110301

REACTIONS (1)
  - PULMONARY EMBOLISM [None]
